FAERS Safety Report 8927953 (Version 1)
Quarter: 2012Q4

REPORT INFORMATION
  Report Type: Spontaneous
  Country: US (occurrence: None)
  Receive Date: 20121121
  Receipt Date: 20121121
  Transmission Date: 20130627
  Serious: Yes (Other)
  Sender: FDA-Public Use
  Company Number: None

PATIENT
  Age: 52 Year
  Sex: Female
  Weight: 56.25 kg

DRUGS (1)
  1. ZETIA [Suspect]
     Indication: BLOOD CHOLESTEROL ABNORMAL
     Route: 048
     Dates: start: 20120925

REACTIONS (12)
  - Diarrhoea [None]
  - Arthralgia [None]
  - Fatigue [None]
  - Hypersomnia [None]
  - Pruritus [None]
  - Depression [None]
  - Abdominal pain upper [None]
  - Nausea [None]
  - Vision blurred [None]
  - Ocular icterus [None]
  - Eye disorder [None]
  - Product substitution issue [None]
